FAERS Safety Report 9856348 (Version 2)
Quarter: 2014Q2

REPORT INFORMATION
  Report Type: Spontaneous
  Country: US (occurrence: US)
  Receive Date: 20140130
  Receipt Date: 20140528
  Transmission Date: 20141212
  Serious: Yes (Hospitalization, Other)
  Sender: FDA-Public Use
  Company Number: US-BAYER-2014-015049

PATIENT
  Age: 29 Year
  Sex: Female

DRUGS (4)
  1. NATAZIA [Suspect]
     Indication: MENORRHAGIA
     Dosage: 1 DF, QD
     Route: 048
     Dates: start: 201303, end: 20131123
  2. NATAZIA [Suspect]
     Indication: ANAEMIA
  3. NATAZIA [Suspect]
     Indication: UTERINE POLYP
  4. XARELTO [Suspect]
     Dosage: UNK
     Dates: start: 201401

REACTIONS (4)
  - Pulmonary embolism [None]
  - Deep vein thrombosis [None]
  - Genital haemorrhage [Not Recovered/Not Resolved]
  - Anaemia [Not Recovered/Not Resolved]
